FAERS Safety Report 24534178 (Version 1)
Quarter: 2024Q4

REPORT INFORMATION
  Report Type: Spontaneous
  Country: US (occurrence: None)
  Receive Date: 20241022
  Receipt Date: 20241022
  Transmission Date: 20250114
  Serious: Yes (Hospitalization)
  Sender: Public
  Company Number: None

PATIENT
  Age: 37 Year
  Sex: Male
  Weight: 86 kg

DRUGS (3)
  1. CYTARABINE [Suspect]
     Active Substance: CYTARABINE
     Dates: end: 20240314
  2. METHOTREXATE [Suspect]
     Active Substance: METHOTREXATE
     Dates: end: 20240311
  3. PONATINIB [Concomitant]
     Active Substance: PONATINIB
     Dates: end: 20240407

REACTIONS (2)
  - Procedural pain [None]
  - Pyrexia [None]

NARRATIVE: CASE EVENT DATE: 20240409
